FAERS Safety Report 9210222 (Version 1)
Quarter: 2013Q2

REPORT INFORMATION
  Report Type: Report from Study
  Country: PT (occurrence: PT)
  Receive Date: 20130404
  Receipt Date: 20130404
  Transmission Date: 20140414
  Serious: Yes (Other)
  Sender: FDA-Public Use
  Company Number: PT-ABBOTT-13P-130-1072212-00

PATIENT
  Age: 48 Year
  Sex: Female

DRUGS (2)
  1. KALETRA [Suspect]
     Indication: HIV INFECTION
  2. KIVEXA [Concomitant]
     Indication: HIV INFECTION

REACTIONS (2)
  - Fibrosis [Unknown]
  - Hepatitis C [Unknown]
